FAERS Safety Report 19894944 (Version 1)
Quarter: 2021Q3

REPORT INFORMATION
  Report Type: Report from Study
  Country: None (occurrence: CO)
  Receive Date: 20210928
  Receipt Date: 20210928
  Transmission Date: 20211014
  Serious: Yes (Other)
  Sender: FDA-Public Use
  Company Number: CO-ABBVIE-21K-036-4096722-00

PATIENT
  Sex: Male

DRUGS (3)
  1. HUMIRA [Suspect]
     Active Substance: ADALIMUMAB
     Indication: RHEUMATOID ARTHRITIS
     Route: 058
     Dates: start: 20081125
  2. ACETAMINOPHEN AND TRAMADOL [Suspect]
     Active Substance: ACETAMINOPHEN\TRAMADOL
     Indication: PRODUCT USED FOR UNKNOWN INDICATION
     Route: 048
  3. HUMIRA [Suspect]
     Active Substance: ADALIMUMAB
     Indication: RHEUMATOID ARTHRITIS
     Dosage: CITRATE FREE
     Route: 058

REACTIONS (11)
  - Somnolence [Unknown]
  - Dysstasia [Unknown]
  - Dry skin [Unknown]
  - Muscle spasms [Unknown]
  - Discouragement [Unknown]
  - Seizure [Unknown]
  - Anxiety [Unknown]
  - Feeling of despair [Unknown]
  - Hypersensitivity [Unknown]
  - Bone pain [Unknown]
  - Pruritus allergic [Unknown]

NARRATIVE: CASE EVENT DATE: 2018
